FAERS Safety Report 13142793 (Version 2)
Quarter: 2017Q1

REPORT INFORMATION
  Report Type: Report from Study
  Country: None (occurrence: US)
  Receive Date: 20170123
  Receipt Date: 20170302
  Transmission Date: 20170428
  Serious: Yes (Other)
  Sender: FDA-Public Use
  Company Number: US-ABBVIE-17K-163-1839610-00

PATIENT
  Age: 45 Year
  Sex: Female

DRUGS (1)
  1. HUMIRA [Suspect]
     Active Substance: ADALIMUMAB
     Indication: RHEUMATOID ARTHRITIS
     Route: 058
     Dates: start: 201205, end: 201610

REACTIONS (16)
  - Systemic lupus erythematosus [Not Recovered/Not Resolved]
  - Eye swelling [Not Recovered/Not Resolved]
  - Renal haemorrhage [Recovered/Resolved]
  - Road traffic accident [Recovered/Resolved]
  - Uterine leiomyoma [Recovered/Resolved]
  - Arthritis [Not Recovered/Not Resolved]
  - Abdominal discomfort [Recovered/Resolved]
  - Influenza like illness [Recovered/Resolved]
  - Double stranded DNA antibody positive [Unknown]
  - Blood urine present [Unknown]
  - Hypertension [Recovering/Resolving]
  - Nephritis [Not Recovered/Not Resolved]
  - Blood urine present [Not Recovered/Not Resolved]
  - Concussion [Recovered/Resolved]
  - Uterine leiomyoma [Unknown]
  - Menorrhagia [Recovered/Resolved]

NARRATIVE: CASE EVENT DATE: 201607
